FAERS Safety Report 6276440-5 (Version None)
Quarter: 2009Q3

REPORT INFORMATION
  Report Type: 
  Country: None (occurrence: None)
  Receive Date: 20090720
  Receipt Date: 20081209
  Transmission Date: 20100115
  Serious: Yes (Other)
  Sender: FDA-Public Use
  Company Number: USA-2008-0036204

PATIENT
  Sex: Male

DRUGS (2)
  1. MORPHINE SULFATE [Suspect]
     Indication: PAIN
  2. MARIJUANA (CANNABIS SATIVA) [Suspect]
     Indication: DRUG ABUSE

REACTIONS (1)
  - SUBSTANCE ABUSE [None]
